FAERS Safety Report 11842940 (Version 2)
Quarter: 2016Q1

REPORT INFORMATION
  Report Type: Spontaneous
  Country: US (occurrence: US)
  Receive Date: 20151216
  Receipt Date: 20160125
  Transmission Date: 20160526
  Serious: No
  Sender: FDA-Public Use
  Company Number: US-PFIZER INC-2015442337

PATIENT
  Age: 30 Year
  Sex: Female

DRUGS (5)
  1. CALAN [Suspect]
     Active Substance: VERAPAMIL HYDROCHLORIDE
     Indication: SUPRAVENTRICULAR TACHYCARDIA
  2. DIGOXIN. [Suspect]
     Active Substance: DIGOXIN
     Indication: MITRAL VALVE PROLAPSE
     Dosage: UNK
     Dates: start: 1987, end: 1987
  3. DIGOXIN. [Suspect]
     Active Substance: DIGOXIN
     Indication: SUPRAVENTRICULAR TACHYCARDIA
  4. CALAN [Suspect]
     Active Substance: VERAPAMIL HYDROCHLORIDE
     Indication: MITRAL VALVE PROLAPSE
     Dosage: UNK
     Dates: start: 1987, end: 1987
  5. SYNTHROID [Concomitant]
     Active Substance: LEVOTHYROXINE SODIUM

REACTIONS (1)
  - Drug ineffective [Recovered/Resolved]

NARRATIVE: CASE EVENT DATE: 1987
